FAERS Safety Report 7203561-2 (Version None)
Quarter: 2010Q4

REPORT INFORMATION
  Report Type: 
  Country: None (occurrence: None)
  Receive Date: 20101230
  Receipt Date: 20101227
  Transmission Date: 20110411
  Serious: Yes (Hospitalization)
  Sender: FDA-Public Use
  Company Number: TR-KINGPHARMUSA00001-K201001550

PATIENT
  Age: 12 Year
  Sex: Male

DRUGS (1)
  1. BICILLIN L-A [Suspect]
     Indication: RHEUMATIC FEVER
     Dosage: UNK
     Route: 030

REACTIONS (9)
  - BLOOD CREATINE PHOSPHOKINASE INCREASED [None]
  - EMBOLIA CUTIS MEDICAMENTOSA [None]
  - GAIT DISTURBANCE [None]
  - INJECTION SITE HAEMATOMA [None]
  - INJECTION SITE HAEMORRHAGE [None]
  - INJECTION SITE OEDEMA [None]
  - INJECTION SITE PAIN [None]
  - SKIN DISCOLOURATION [None]
  - SKIN PLAQUE [None]
